FAERS Safety Report 8524557-4 (Version None)
Quarter: 2012Q3

REPORT INFORMATION
  Report Type: 
  Country: None (occurrence: None)
  Receive Date: 20120720
  Receipt Date: 20081007
  Transmission Date: 20120928
  Serious: Yes (Hospitalization)
  Sender: FDA-Public Use
  Company Number: AT-ROCHE-590664

PATIENT
  Sex: Male
  Weight: 55 kg

DRUGS (2)
  1. INTERFERON ALFA-2A [Concomitant]
     Indication: RENAL CANCER METASTATIC
  2. AVASTIN [Suspect]
     Indication: RENAL CANCER METASTATIC
     Dosage: STRENGTH: 10 MG/KG (ABSOLUTE 530 MG); FORM INFUSION
     Route: 042
     Dates: start: 20080612, end: 20080925

REACTIONS (3)
  - HYPERTONIA [None]
  - TACHYCARDIA [None]
  - DYSPNOEA [None]
